FAERS Safety Report 10517927 (Version 1)
Quarter: 2014Q4

REPORT INFORMATION
  Report Type: Spontaneous
  Country: US (occurrence: US)
  Receive Date: 20141015
  Receipt Date: 20141015
  Transmission Date: 20150528
  Serious: Yes (Death, Hospitalization)
  Sender: FDA-Public Use
  Company Number: US-BRISTOL-MYERS SQUIBB COMPANY-21481825

PATIENT
  Age: 75 Year
  Sex: Female

DRUGS (1)
  1. COUMADIN [Suspect]
     Active Substance: WARFARIN SODIUM

REACTIONS (7)
  - Toxicity to various agents [Unknown]
  - Haematuria [Unknown]
  - Cerebrovascular accident [Fatal]
  - International normalised ratio increased [Unknown]
  - Rectal haemorrhage [Unknown]
  - Mental status changes [Unknown]
  - Vaginal haemorrhage [Unknown]
